FAERS Safety Report 7451107-6 (Version None)
Quarter: 2011Q2

REPORT INFORMATION
  Report Type: 
  Country: None (occurrence: None)
  Receive Date: 20110502
  Receipt Date: 20110426
  Transmission Date: 20111010
  Serious: Yes (Hospitalization)
  Sender: FDA-Public Use
  Company Number: ES-CEPHALON-2011001699

PATIENT
  Sex: Female

DRUGS (11)
  1. RITUXIMAB [Suspect]
     Indication: B-CELL LYMPHOMA
     Route: 042
     Dates: start: 20110315
  2. NOCTAMID [Concomitant]
  3. ESIDRIX [Concomitant]
  4. OMEPRAZOL [Concomitant]
  5. LYRICA [Concomitant]
  6. PANTECTA [Concomitant]
  7. TARDYFERON [Concomitant]
  8. ASPIRIN [Concomitant]
  9. ACICLOVIR [Concomitant]
  10. BENDAMUSTINE HCL [Suspect]
     Indication: B-CELL LYMPHOMA
     Route: 042
  11. VALTREX [Concomitant]

REACTIONS (1)
  - VIITH NERVE PARALYSIS [None]
